FAERS Safety Report 5038154-9 (Version None)
Quarter: 2006Q2

REPORT INFORMATION
  Report Type: 
  Country: None (occurrence: None)
  Receive Date: 20060622
  Receipt Date: 20060612
  Transmission Date: 20061013
  Serious: Yes (Disabling, Other)
  Sender: FDA-Public Use
  Company Number: 2006075372

PATIENT
  Sex: Male
  Weight: 127.0072 kg

DRUGS (1)
  1. BEXTRA [Suspect]
     Indication: ARTHRITIS
     Dosage: 10 MG (10 MG, 1 IN 1 D)

REACTIONS (5)
  - CONDITION AGGRAVATED [None]
  - JOINT INJURY [None]
  - PENIS DISORDER [None]
  - SEXUAL DYSFUNCTION [None]
  - SKIN DISORDER [None]
